FAERS Safety Report 9788312 (Version 3)
Quarter: 2014Q2

REPORT INFORMATION
  Report Type: Spontaneous
  Country: SE (occurrence: SE)
  Receive Date: 20131230
  Receipt Date: 20140507
  Transmission Date: 20141212
  Serious: Yes (Hospitalization, Disabling)
  Sender: FDA-Public Use
  Company Number: CHNY2013SE002912

PATIENT
  Age: 63 Year
  Sex: Female

DRUGS (4)
  1. ACLASTA [Suspect]
     Indication: OSTEOPOROSIS
     Dosage: 5 MG, UNK
     Route: 042
     Dates: start: 20130821
  2. LEVAXIN [Concomitant]
     Dosage: UNK UKN, UNK
  3. STILNOCT [Concomitant]
     Dosage: UNK UKN, UNK
  4. CALCICHEW-D3 [Concomitant]
     Dosage: UNK UKN, UNK

REACTIONS (9)
  - Adrenal insufficiency [Recovered/Resolved with Sequelae]
  - Fatigue [Unknown]
  - Vomiting [Unknown]
  - Diarrhoea [Unknown]
  - Dizziness [Unknown]
  - Hypotension [Unknown]
  - Tanning [Unknown]
  - Weight decreased [Unknown]
  - Nausea [Recovered/Resolved with Sequelae]
